FAERS Safety Report 4852851-7 (Version None)
Quarter: 2005Q4

REPORT INFORMATION
  Report Type: 
  Country: None (occurrence: None)
  Receive Date: 20051214
  Receipt Date: 20051125
  Transmission Date: 20060501
  Serious: Yes (Death, Life-Threatening, Hospitalization)
  Sender: FDA-Public Use
  Company Number: AU-BOEHRINGER INGELHEIM PHARMACEUTICALS, INC.-2005-BP-20649AU

PATIENT
  Sex: Female

DRUGS (5)
  1. MOBIC [Suspect]
     Route: 048
     Dates: start: 20030101
  2. ACETAMINOPHEN [Concomitant]
  3. GLUCOSAMINE [Concomitant]
  4. ASTRIX [Concomitant]
     Dosage: 1 DOSE
  5. NATUROPATHIC DROPS [Concomitant]

REACTIONS (17)
  - APOPTOSIS [None]
  - BLOOD BILIRUBIN INCREASED [None]
  - BLOOD CREATININE INCREASED [None]
  - CHOLESTASIS [None]
  - CHROMATURIA [None]
  - HEPATIC ENZYME INCREASED [None]
  - HEPATIC FIBROSIS [None]
  - HEPATIC NECROSIS [None]
  - HEPATITIS ACUTE [None]
  - HEPATOCELLULAR DAMAGE [None]
  - HEPATORENAL FAILURE [None]
  - JAUNDICE [None]
  - LIVER DISORDER [None]
  - LIVER FUNCTION TEST ABNORMAL [None]
  - MALAISE [None]
  - RENAL IMPAIRMENT [None]
  - TRANSAMINASES INCREASED [None]
